FAERS Safety Report 17460334 (Version 2)
Quarter: 2020Q1

REPORT INFORMATION
  Report Type: Spontaneous
  Country: US (occurrence: US)
  Receive Date: 20200226
  Receipt Date: 20200304
  Transmission Date: 20200409
  Serious: No
  Sender: FDA-Public Use
  Company Number: US-PFIZER INC-2020082519

PATIENT
  Sex: Female

DRUGS (1)
  1. GEODON [Suspect]
     Active Substance: ZIPRASIDONE HYDROCHLORIDE\ZIPRASIDONE MESYLATE
     Dosage: UNK, 1X/DAY (GEODON WITH FOOD IN THE MORNING)

REACTIONS (5)
  - Terminal insomnia [Unknown]
  - Dysarthria [Unknown]
  - Insomnia [Unknown]
  - Somnolence [Unknown]
  - Sedation [Unknown]
